FAERS Safety Report 6326739-9 (Version None)
Quarter: 2009Q3

REPORT INFORMATION
  Report Type: 
  Country: None (occurrence: None)
  Receive Date: 20090825
  Receipt Date: 20090819
  Transmission Date: 20100115
  Serious: Yes (Other)
  Sender: FDA-Public Use
  Company Number: PHEH2007US02472

PATIENT
  Sex: Female

DRUGS (10)
  1. CLOZARIL [Suspect]
     Indication: SCHIZOAFFECTIVE DISORDER
  2. CLOZAPINE [Suspect]
     Indication: SCHIZOAFFECTIVE DISORDER
     Dosage: 500 MG, QD
     Dates: start: 20051001, end: 20070101
  3. CLOZAPINE [Suspect]
     Dosage: 400 MG, BID
     Route: 048
     Dates: start: 20070101
  4. METFORMIN HCL [Concomitant]
  5. GLUCOTROL [Concomitant]
  6. MULTI-VITAMINS [Concomitant]
  7. ASPIRIN [Concomitant]
  8. FOLIC ACID [Concomitant]
  9. ABILIFY [Concomitant]
  10. CALCIUM [Concomitant]

REACTIONS (2)
  - CERVIX CARCINOMA STAGE I [None]
  - HYSTERECTOMY [None]
